FAERS Safety Report 7607577-3 (Version None)
Quarter: 2011Q3

REPORT INFORMATION
  Report Type: 
  Country: None (occurrence: None)
  Receive Date: 20110713
  Receipt Date: 20110711
  Transmission Date: 20111222
  Serious: Yes (Death, Other)
  Sender: FDA-Public Use
  Company Number: PHHY2011US58620

PATIENT
  Sex: Female

DRUGS (3)
  1. AFINITOR [Suspect]
     Dosage: 10 MG, QD
     Dates: start: 20110616, end: 20110628
  2. OXYCONTIN [Concomitant]
  3. VICODIN [Concomitant]

REACTIONS (14)
  - DEATH [None]
  - PNEUMONIA [None]
  - PLEURAL EFFUSION [None]
  - DECREASED APPETITE [None]
  - BLOOD GLUCOSE INCREASED [None]
  - MALAISE [None]
  - LUNG DISORDER [None]
  - INCREASED UPPER AIRWAY SECRETION [None]
  - DYSPNOEA [None]
  - NEOPLASM PROGRESSION [None]
  - CHOKING [None]
  - NEOPLASM MALIGNANT [None]
  - GENERAL PHYSICAL HEALTH DETERIORATION [None]
  - THERAPEUTIC RESPONSE DECREASED [None]
